FAERS Safety Report 25105123 (Version 1)
Quarter: 2025Q1

REPORT INFORMATION
  Report Type: Spontaneous
  Country: US (occurrence: US)
  Receive Date: 20250321
  Receipt Date: 20250321
  Transmission Date: 20250409
  Serious: Yes (Hospitalization)
  Sender: APOTEX
  Company Number: US-APOTEX-2025AP003443

PATIENT
  Age: 77 Year
  Sex: Male

DRUGS (4)
  1. APIXABAN [Interacting]
     Active Substance: APIXABAN
     Indication: Atrial fibrillation
     Route: 065
  2. LACOSAMIDE [Interacting]
     Active Substance: LACOSAMIDE
     Indication: Seizure
     Route: 065
  3. FLECAINIDE [Interacting]
     Active Substance: FLECAINIDE
     Indication: Atrial fibrillation
     Route: 065
  4. TESSALON [Interacting]
     Active Substance: BENZONATATE
     Indication: Product used for unknown indication
     Route: 065

REACTIONS (2)
  - Toxicity to various agents [Recovered/Resolved]
  - Drug interaction [Recovered/Resolved]
